FAERS Safety Report 5415616-3 (Version None)
Quarter: 2007Q3

REPORT INFORMATION
  Report Type: 
  Country: None (occurrence: None)
  Receive Date: 20070815
  Receipt Date: 20070808
  Transmission Date: 20080115
  Serious: Yes (Hospitalization)
  Sender: FDA-Public Use
  Company Number: BR-ROCHE-511071

PATIENT
  Age: 71 Year
  Sex: Female
  Weight: 80 kg

DRUGS (4)
  1. XELODA [Suspect]
     Indication: BREAST CANCER
     Route: 048
     Dates: start: 20070601, end: 20070601
  2. INSULIN [Concomitant]
  3. REMERON [Concomitant]
     Indication: DEPRESSION
  4. UNSPECIFIED DRUG [Concomitant]
     Dosage: DRUG NAME REPORTED AS OMEGA 3.

REACTIONS (3)
  - DEHYDRATION [None]
  - DIARRHOEA [None]
  - FLATULENCE [None]
